FAERS Safety Report 7227928-1 (Version None)
Quarter: 2011Q1

REPORT INFORMATION
  Report Type: 
  Country: None (occurrence: None)
  Receive Date: 20110114
  Receipt Date: 20110111
  Transmission Date: 20110831
  Serious: Yes (Other)
  Sender: FDA-Public Use
  Company Number: US-PFIZER INC-2011007821

PATIENT
  Sex: Female

DRUGS (1)
  1. GEODON [Suspect]
     Indication: BIPOLAR DISORDER
     Dosage: 40 MG, 2X/DAY

REACTIONS (5)
  - CONFUSIONAL STATE [None]
  - MANIA [None]
  - HALLUCINATION [None]
  - DRUG INEFFECTIVE [None]
  - DIZZINESS [None]
